FAERS Safety Report 8450663-9 (Version None)
Quarter: 2012Q2

REPORT INFORMATION
  Report Type: 
  Country: None (occurrence: None)
  Receive Date: 20120620
  Receipt Date: 20120618
  Transmission Date: 20120825
  Serious: Yes (Other)
  Sender: FDA-Public Use
  Company Number: IT-PFIZER INC-2012146803

PATIENT
  Age: 25 Year
  Sex: Female

DRUGS (2)
  1. LYRICA [Suspect]
     Indication: NEUROPATHY PERIPHERAL
     Dosage: 75 MG, UNK
     Route: 048
  2. ADEPRIL [Concomitant]
     Dosage: 10 MG, UNK

REACTIONS (2)
  - SCOTOMA [None]
  - RETINAL DISORDER [None]
